FAERS Safety Report 8304090-5 (Version None)
Quarter: 2012Q2

REPORT INFORMATION
  Report Type: 
  Country: None (occurrence: None)
  Receive Date: 20120418
  Receipt Date: 20100714
  Transmission Date: 20120825
  Serious: No
  Sender: FDA-Public Use
  Company Number: AEUSA201000267

PATIENT
  Age: 54 Year
  Sex: Male
  Weight: 95 kg

DRUGS (8)
  1. ALBUTEROL SULFATE AND IPRATROPIUM BROMIDE [Concomitant]
  2. LASIX [Concomitant]
  3. XANAX [Concomitant]
  4. ASPARIN [Concomitant]
  5. PROLASTIN [Concomitant]
  6. PROLASTIN-C [Suspect]
     Indication: ALPHA-1 ANTI-TRYPSIN DEFICIENCY
     Dosage: 5900 MG, QW, IV
     Route: 042
     Dates: start: 20100601
  7. OLAPATADINE [Concomitant]
  8. ADVAIR DISKUS 100/50 [Concomitant]

REACTIONS (6)
  - ASTHENIA [None]
  - DECREASED APPETITE [None]
  - OEDEMA PERIPHERAL [None]
  - BONE PAIN [None]
  - PYREXIA [None]
  - VIRAL INFECTION [None]
